FAERS Safety Report 4924350-5 (Version None)
Quarter: 2006Q1

REPORT INFORMATION
  Report Type: 
  Country: None (occurrence: None)
  Receive Date: 20060227
  Receipt Date: 20060120
  Transmission Date: 20060701
  Serious: No
  Sender: FDA-Public Use
  Company Number: US-GLAXOSMITHKLINE-A0590280A

PATIENT
  Age: 65 Year
  Sex: Male

DRUGS (17)
  1. WELLBUTRIN XL [Suspect]
     Dosage: 450MG PER DAY
     Route: 048
     Dates: start: 20051201
  2. XENICAL [Suspect]
     Route: 065
  3. LISINOPRIL [Concomitant]
  4. ROSIGLITAZONE [Concomitant]
  5. METOPROLOL [Concomitant]
  6. TERAZOSIN [Concomitant]
  7. NPH INSULIN [Concomitant]
  8. COMBIVENT [Concomitant]
  9. SIMVASTATIN [Concomitant]
  10. METFORMIN [Concomitant]
  11. CYCLOBENZAPRINE HCL [Concomitant]
  12. CENTRUM SILVER [Concomitant]
  13. FINASTERIDE [Concomitant]
  14. ALLOPURINOL [Concomitant]
  15. INDOMETHACIN [Concomitant]
  16. HYDROCHLOROTHIAZIDE [Concomitant]
  17. FUROSEMIDE [Concomitant]

REACTIONS (2)
  - DRY MOUTH [None]
  - FLATULENCE [None]
